FAERS Safety Report 8114525-9 (Version None)
Quarter: 2012Q1

REPORT INFORMATION
  Report Type: 
  Country: None (occurrence: None)
  Receive Date: 20120206
  Receipt Date: 20120203
  Transmission Date: 20120608
  Serious: No
  Sender: FDA-Public Use
  Company Number: US-PFIZER INC-2012030780

PATIENT
  Sex: Female
  Weight: 70.295 kg

DRUGS (6)
  1. AMBIEN [Concomitant]
     Dosage: 12.5 MG, UNK
  2. ATACAND [Concomitant]
     Indication: HYPERTENSION
     Dosage: 10 MG, DAILY
  3. TRAMADOL [Concomitant]
     Dosage: UNK, 50MG ONE TO TWO TABLETS EVERY 8 HOURS ORALLY AS NEEDED WITH MAXIMUM OF 6 TABLETS IN DAY
     Route: 048
  4. METHADONE HYDROCHLORIDE [Concomitant]
     Dosage: 5 MG, 3X/DAY
     Route: 048
  5. VOLTAREN [Concomitant]
     Dosage: UNK, 2X/DAY
  6. CHANTIX [Suspect]
     Indication: SMOKING CESSATION THERAPY
     Dosage: UNK
     Route: 048

REACTIONS (1)
  - NAUSEA [None]
